FAERS Safety Report 7528962-4 (Version None)
Quarter: 2011Q2

REPORT INFORMATION
  Report Type: 
  Country: None (occurrence: None)
  Receive Date: 20110607
  Receipt Date: 20110530
  Transmission Date: 20111010
  Serious: Yes (Death)
  Sender: FDA-Public Use
  Company Number: PE-PFIZER INC-2011117514

PATIENT
  Age: 89 Year
  Sex: Male

DRUGS (1)
  1. ECALTA [Suspect]
     Indication: ONYCHOMYCOSIS
     Dosage: UNK

REACTIONS (1)
  - DEATH [None]
